FAERS Safety Report 5663408-2 (Version None)
Quarter: 2008Q1

REPORT INFORMATION
  Report Type: 
  Country: None (occurrence: None)
  Receive Date: 20080313
  Receipt Date: 20080303
  Transmission Date: 20080703
  Serious: No
  Sender: FDA-Public Use
  Company Number: CA-BAXTER-2008BH002029

PATIENT
  Age: 44 Year
  Sex: Female

DRUGS (1)
  1. GAMMAGARD LIQUID [Suspect]
     Indication: POLYNEUROPATHY
     Route: 042
     Dates: start: 20071113, end: 20071113

REACTIONS (3)
  - CHEST DISCOMFORT [None]
  - FLUSHING [None]
  - THROAT IRRITATION [None]
